FAERS Safety Report 15183106 (Version 1)
Quarter: 2018Q3

REPORT INFORMATION
  Report Type: Report from Study
  Country: CA (occurrence: CA)
  Receive Date: 20180723
  Receipt Date: 20180723
  Transmission Date: 20181010
  Serious: Yes (Other)
  Sender: FDA-Public Use
  Company Number: CA-GILEAD-2018-0339042

PATIENT
  Age: 38 Year
  Sex: Male

DRUGS (2)
  1. AZTREONAM LYSINE [Suspect]
     Active Substance: AZTREONAM LYSINE
     Indication: CYSTIC FIBROSIS
     Dosage: UNK
     Route: 055
     Dates: end: 20180430
  2. AZTREONAM LYSINE [Suspect]
     Active Substance: AZTREONAM LYSINE
     Dosage: UNK
     Route: 055
     Dates: end: 20180521

REACTIONS (2)
  - Intentional product use issue [Recovered/Resolved]
  - Lung transplant [Unknown]

NARRATIVE: CASE EVENT DATE: 20180430
